FAERS Safety Report 23099438 (Version 2)
Quarter: 2025Q1

REPORT INFORMATION
  Report Type: Spontaneous
  Country: US (occurrence: US)
  Receive Date: 20231024
  Receipt Date: 20250102
  Transmission Date: 20250409
  Serious: Yes (Hospitalization, Other)
  Sender: SANOFI AVENTIS
  Company Number: US-SA-SAC20231021000445

PATIENT
  Sex: Female

DRUGS (9)
  1. DUPIXENT [Suspect]
     Active Substance: DUPILUMAB
     Indication: Dermatitis atopic
     Dosage: 300 MG, QOW
     Route: 058
     Dates: start: 20230712
  2. ARAVA [Concomitant]
     Active Substance: LEFLUNOMIDE
  3. CARVEDILOL [Concomitant]
     Active Substance: CARVEDILOL
  4. ENBREL [Concomitant]
     Active Substance: ETANERCEPT
  5. HYDROXYZINE [Concomitant]
     Active Substance: HYDROXYZINE HYDROCHLORIDE
  6. OMEPRAZOLE [Concomitant]
     Active Substance: OMEPRAZOLE
  7. VALSARTAN [Concomitant]
     Active Substance: VALSARTAN
  8. LEVOTHYROXINE [Concomitant]
     Active Substance: LEVOTHYROXINE
  9. CYCLOBENZAPRINE [Concomitant]
     Active Substance: CYCLOBENZAPRINE

REACTIONS (7)
  - Haematemesis [Unknown]
  - Dermatitis atopic [Unknown]
  - Pruritus [Recovering/Resolving]
  - Skin haemorrhage [Not Recovered/Not Resolved]
  - Dry skin [Unknown]
  - Scratch [Not Recovered/Not Resolved]
  - Sleep disorder due to a general medical condition [Not Recovered/Not Resolved]

NARRATIVE: CASE EVENT DATE: 20230101
